FAERS Safety Report 6270474-2 (Version None)
Quarter: 2009Q3

REPORT INFORMATION
  Report Type: 
  Country: None (occurrence: None)
  Receive Date: 20090716
  Receipt Date: 20090713
  Transmission Date: 20100115
  Serious: Yes (Hospitalization)
  Sender: FDA-Public Use
  Company Number: DE-BRISTOL-MYERS SQUIBB COMPANY-14646061

PATIENT
  Age: 60 Year
  Sex: Male
  Weight: 104 kg

DRUGS (6)
  1. CETUXIMAB [Suspect]
     Indication: COLORECTAL CANCER
     Dosage: 5MG/ML, RECENT INFU ON 04-MAY-2009
     Route: 042
     Dates: start: 20090112
  2. OXALIPLATIN [Suspect]
     Indication: COLORECTAL CANCER
     Dosage: RECENT INFU ON 27-APR-2009
     Route: 042
     Dates: start: 20090112
  3. FLUOROURACIL [Suspect]
     Indication: COLORECTAL CANCER
     Dosage: RECENT INFU ON 27-APR-2009
     Route: 042
     Dates: start: 20090112
  4. FOLINIC ACID [Suspect]
     Indication: COLORECTAL CANCER
     Dosage: RECENT INFU ON 27-APR-2009
     Route: 042
     Dates: start: 20090112
  5. DERMATOP [Concomitant]
     Dates: start: 20090119
  6. LISINOPRIL [Concomitant]
     Dates: start: 20090118

REACTIONS (3)
  - DIABETIC NEPHROPATHY [None]
  - TYPE 2 DIABETES MELLITUS [None]
  - URINARY TRACT INFECTION [None]
